FAERS Safety Report 5677037-8 (Version None)
Quarter: 2008Q1

REPORT INFORMATION
  Report Type: 
  Country: None (occurrence: None)
  Receive Date: 20080318
  Receipt Date: 20080303
  Transmission Date: 20080703
  Serious: Yes (Other)
  Sender: FDA-Public Use
  Company Number: 2008S1003504

PATIENT
  Age: 65 Year
  Sex: Female

DRUGS (4)
  1. TERBINAFINE HYDROCHLORIDE [Suspect]
     Indication: TINEA PEDIS
     Dosage: 250 MG, DAILY;
     Dates: start: 20070301, end: 20080101
  2. ASPIRIN [Concomitant]
  3. ATORVASTATIN CALCIUM [Concomitant]
  4. LOSARTAN POTASSIUM [Concomitant]

REACTIONS (2)
  - GLOMERULAR FILTRATION RATE DECREASED [None]
  - RENAL IMPAIRMENT [None]
